FAERS Safety Report 5193490-0 (Version None)
Quarter: 2006Q4

REPORT INFORMATION
  Report Type: 
  Country: None (occurrence: None)
  Receive Date: 20061228
  Receipt Date: 20060602
  Transmission Date: 20070319
  Serious: No
  Sender: FDA-Public Use
  Company Number: US-GLAXOSMITHKLINE-A0607765A

PATIENT
  Sex: Female

DRUGS (10)
  1. FLONASE [Suspect]
     Indication: RHINITIS
     Dosage: 2PUFF PER DAY
     Route: 045
  2. COLCHICINE [Concomitant]
  3. CALCIUM D [Concomitant]
  4. FUROSEMIDE [Concomitant]
  5. METAPREL [Concomitant]
  6. ZOCOR [Concomitant]
  7. VALSARTAN [Concomitant]
  8. ALLOPURINOL SODIUM [Concomitant]
  9. DILTIAZEM HCL [Concomitant]
  10. ASPIRIN [Concomitant]

REACTIONS (1)
  - WEIGHT INCREASED [None]
